FAERS Safety Report 10039430 (Version 2)
Quarter: 2014Q1

REPORT INFORMATION
  Report Type: Report from Study
  Country: CL (occurrence: CL)
  Receive Date: 20140326
  Receipt Date: 20140326
  Transmission Date: 20141002
  Serious: Yes (Other)
  Sender: FDA-Public Use
  Company Number: CL-BAYER-2014-039788

PATIENT
  Sex: Female

DRUGS (1)
  1. NAPROXEN [Suspect]

REACTIONS (2)
  - Acute hepatic failure [None]
  - Drug-induced liver injury [None]
